FAERS Safety Report 9413535 (Version 1)
Quarter: 2013Q2

REPORT INFORMATION
  Report Type: Spontaneous
  Country: IE (occurrence: None)
  Receive Date: 20130415
  Receipt Date: 20130415
  Transmission Date: 20140414
  Serious: Yes (Other)
  Sender: FDA-Public Use
  Company Number: 221080

PATIENT
  Age: 54 Year
  Sex: Male

DRUGS (1)
  1. INNOHEP [Suspect]
     Indication: DEEP VEIN THROMBOSIS
     Dates: start: 201204, end: 20120713

REACTIONS (1)
  - Pulmonary embolism [None]
